FAERS Safety Report 8108524 (Version 3)
Quarter: 2012Q4

REPORT INFORMATION
  Report Type: Spontaneous
  Country: US (occurrence: None)
  Receive Date: 20110803
  Receipt Date: 20120713
  Transmission Date: 20130627
  Serious: Yes (Hospitalization, Other)
  Sender: FDA-Public Use
  Company Number: 18673

PATIENT
  Age: 73 Year
  Sex: Female
  Weight: 245 kg

DRUGS (18)
  1. GLASSIA [Suspect]
     Indication: ALPHA-1 ANTI-TRYPSIN DECREASED
     Dosage: 6840MG, IV, WEEKLY
     Dates: start: 20110120, end: 20110720
  2. CATAPRES TTS (CLONODINE) [Concomitant]
  3. NORVASC [Concomitant]
  4. HYDROCHLOROTHIAZIDE [Concomitant]
  5. LANTUS 24U HS (INSULIN GLARGINE [RDNA ORIGIN]) [Concomitant]
  6. HUMALOG TID (INSULIN LISPRO INJECTION) [Concomitant]
  7. PROAIR (ALBUTEROLSULFATE) [Concomitant]
  8. FLONASE [Concomitant]
  9. SYNTHYROID (LEVOTHYROXINE SODIUM) [Concomitant]
  10. NEURONTIN [Concomitant]
  11. MELOXICAM [Concomitant]
  12. LIVALO (PITASVASATIN) [Concomitant]
  13. VITAMIN D 4000U [Concomitant]
  14. PREVACID [Concomitant]
  15. REMERON (MIRLAZAPINE) [Concomitant]
  16. MIRALAX [Concomitant]
  17. LORAZEPAM [Concomitant]
  18. VICODIN (ACETAMINOPHEN AND HYDROCODONE) [Concomitant]

REACTIONS (14)
  - Nausea [None]
  - Pyrexia [None]
  - Chills [None]
  - Blood pressure increased [None]
  - Dyspnoea [None]
  - Wheezing [None]
  - Oxygen saturation decreased [None]
  - Feeling cold [None]
  - Tremor [None]
  - Device related infection [None]
  - Chest pain [None]
  - Myalgia [None]
  - Muscle spasms [None]
  - Medical device complication [None]
